FAERS Safety Report 22615511 (Version 1)
Quarter: 2023Q2

REPORT INFORMATION
  Report Type: Spontaneous
  Country: US (occurrence: US)
  Receive Date: 20230619
  Receipt Date: 20230619
  Transmission Date: 20230722
  Serious: Yes (Other)
  Sender: FDA-Public Use
  Company Number: US-JNJFOC-20230629646

PATIENT

DRUGS (1)
  1. IBRUTINIB [Suspect]
     Active Substance: IBRUTINIB
     Indication: Product used for unknown indication
     Route: 048

REACTIONS (4)
  - Electrocardiogram QT prolonged [Unknown]
  - Cardiac failure [Unknown]
  - Cerebrovascular accident [Unknown]
  - Myocardial infarction [Unknown]
